FAERS Safety Report 7268216-7 (Version None)
Quarter: 2011Q1

REPORT INFORMATION
  Report Type: 
  Country: None (occurrence: None)
  Receive Date: 20110201
  Receipt Date: 20110121
  Transmission Date: 20110831
  Serious: Yes (Hospitalization)
  Sender: FDA-Public Use
  Company Number: PHHY2010CA44540

PATIENT
  Sex: Male

DRUGS (8)
  1. EXJADE [Suspect]
     Dosage: 6 TABLETS
  2. SPIRIVA [Concomitant]
     Indication: ASTHMA
  3. WATER PILLS [Concomitant]
     Dosage: UNK
  4. BLOOD PRESSURE PILLS [Concomitant]
  5. EXJADE [Suspect]
     Indication: MYELODYSPLASTIC SYNDROME
     Dosage: 2000 MG, QD
     Route: 048
     Dates: start: 20100511, end: 20100911
  6. ANTIBIOTICS [Concomitant]
     Route: 042
  7. ABREVA [Concomitant]
     Dosage: UNK
  8. STEROIDS NOS [Concomitant]

REACTIONS (6)
  - SLUGGISHNESS [None]
  - IMPAIRED HEALING [None]
  - ABDOMINAL DISTENSION [None]
  - ABDOMINAL DISCOMFORT [None]
  - CELLULITIS [None]
  - CONSTIPATION [None]
